FAERS Safety Report 7100119-0 (Version None)
Quarter: 2010Q4

REPORT INFORMATION
  Report Type: 
  Country: None (occurrence: None)
  Receive Date: 20101112
  Receipt Date: 20100209
  Transmission Date: 20110411
  Serious: No
  Sender: FDA-Public Use
  Company Number: A0843924A

PATIENT

DRUGS (3)
  1. COREG [Suspect]
     Route: 048
  2. DIOVAN [Suspect]
     Route: 065
  3. DIOVAN HCT [Suspect]
     Route: 065

REACTIONS (1)
  - DRUG INTERACTION [None]
